FAERS Safety Report 4472139-6 (Version None)
Quarter: 2004Q3

REPORT INFORMATION
  Report Type: 
  Country: None (occurrence: None)
  Receive Date: 20040909
  Receipt Date: 20040629
  Transmission Date: 20050211
  Serious: No
  Sender: FDA-Public Use
  Company Number: A03200402120

PATIENT

DRUGS (1)
  1. ELOXATIN [Suspect]
     Dosage: INTRANVENOUS NOS
     Route: 042

REACTIONS (1)
  - PAIN IN EXTREMITY [None]
